FAERS Safety Report 22184110 (Version 2)
Quarter: 2023Q2

REPORT INFORMATION
  Report Type: Other
  Country: US (occurrence: None)
  Receive Date: 20230407
  Receipt Date: 20230410
  Transmission Date: 20230721
  Serious: Yes (Other)
  Sender: FDA-Public Use
  Company Number: US-ROCHE-3321747

PATIENT
  Age: 66 Year
  Sex: Male

DRUGS (3)
  1. OCREVUS [Suspect]
     Active Substance: OCRELIZUMAB
     Indication: Relapsing multiple sclerosis
     Dosage: DATE OF TREATMENT: 20/APR/2022,
     Route: 042
     Dates: start: 20200309
  2. AUBAGIO [Concomitant]
     Active Substance: TERIFLUNOMIDE
  3. REBIF [Concomitant]
     Active Substance: INTERFERON BETA-1A

REACTIONS (4)
  - Diverticulitis [Unknown]
  - Cough [Not Recovered/Not Resolved]
  - Sinusitis [Unknown]
  - Candida infection [Unknown]
